FAERS Safety Report 16346226 (Version 3)
Quarter: 2020Q1

REPORT INFORMATION
  Report Type: Spontaneous
  Country: CA (occurrence: CA)
  Receive Date: 20190523
  Receipt Date: 20200207
  Transmission Date: 20200409
  Serious: Yes (Death, Hospitalization, Other)
  Sender: FDA-Public Use
  Company Number: CA-AUROBINDO-AUR-APL-2019-028248

PATIENT
  Age: 27 Year
  Sex: Female

DRUGS (26)
  1. TOPIRAMATE. [Suspect]
     Active Substance: TOPIRAMATE
     Indication: STATUS EPILEPTICUS
     Dosage: UNK
     Route: 065
  2. MIDAZOLAM HYDROCHLORIDE. [Suspect]
     Active Substance: MIDAZOLAM HYDROCHLORIDE
     Indication: STATUS EPILEPTICUS
     Dosage: UNK
     Route: 030
  3. PROPOFOL. [Suspect]
     Active Substance: PROPOFOL
     Indication: STATUS EPILEPTICUS
     Dosage: UNK
     Route: 065
  4. PROPOFOL. [Suspect]
     Active Substance: PROPOFOL
     Indication: STATUS EPILEPTICUS
     Dosage: UNK
     Route: 065
  5. LEVETIRACETAM. [Concomitant]
     Active Substance: LEVETIRACETAM
     Indication: PRODUCT USED FOR UNKNOWN INDICATION
     Dosage: UNK
     Route: 065
  6. FORANE [Suspect]
     Active Substance: ISOFLURANE
     Indication: STATUS EPILEPTICUS
     Dosage: UNK
     Route: 065
  7. MIDAZOLAM HYDROCHLORIDE. [Suspect]
     Active Substance: MIDAZOLAM HYDROCHLORIDE
     Indication: STATUS EPILEPTICUS
     Dosage: UNK
     Route: 030
  8. OXCARBAZEPINE. [Suspect]
     Active Substance: OXCARBAZEPINE
     Indication: STATUS EPILEPTICUS
     Dosage: 1000 MILLIGRAM, 1 EVERY 1 HOUR
     Route: 065
  9. IMMUNE GLOBULIN (IMMUNOGLOBULINS NOS) [Suspect]
     Active Substance: IMMUNE GLOBULIN NOS
     Indication: PRODUCT USED FOR UNKNOWN INDICATION
     Dosage: UNK
     Route: 042
  10. IMMUNE SERUM GLOBULIN (IMMUNOGLOBULIN HUMAN NORMAL) [Suspect]
     Active Substance: HUMAN IMMUNOGLOBULIN G
     Indication: STATUS EPILEPTICUS
     Dosage: UNK
     Route: 065
  11. KEPPRA [Suspect]
     Active Substance: LEVETIRACETAM
     Indication: STATUS EPILEPTICUS
     Dosage: UNK
     Route: 065
  12. VALPROIC ACID. [Suspect]
     Active Substance: VALPROIC ACID
     Indication: STATUS EPILEPTICUS
     Dosage: UNK
     Route: 065
  13. CLOBAZAM. [Concomitant]
     Active Substance: CLOBAZAM
     Indication: PRODUCT USED FOR UNKNOWN INDICATION
     Dosage: UNK
     Route: 065
  14. DEXAMETHASONE. [Suspect]
     Active Substance: DEXAMETHASONE
     Indication: STATUS EPILEPTICUS
     Dosage: UNK
     Route: 065
  15. KETAMINE HYDROCHLORIDE. [Suspect]
     Active Substance: KETAMINE HYDROCHLORIDE
     Indication: STATUS EPILEPTICUS
     Dosage: UNK
     Route: 030
  16. OXCARBAZEPINE. [Suspect]
     Active Substance: OXCARBAZEPINE
     Dosage: 100 MILLIGRAM, EVERY HOUR
     Route: 065
  17. MAGNESIUM [Suspect]
     Active Substance: MAGNESIUM
     Indication: PRODUCT USED FOR UNKNOWN INDICATION
     Dosage: UNK
     Route: 065
  18. VIMPAT [Suspect]
     Active Substance: LACOSAMIDE
     Indication: STATUS EPILEPTICUS
     Dosage: UNK
     Route: 065
  19. LEVETIRACETAM TABLET [Suspect]
     Active Substance: LEVETIRACETAM
     Indication: STATUS EPILEPTICUS
     Dosage: UNK
     Route: 065
  20. MAGNESIUM SULFATE. [Suspect]
     Active Substance: MAGNESIUM SULFATE
     Indication: STATUS EPILEPTICUS
     Dosage: UNK
     Route: 065
  21. PENTOBARBITAL. [Suspect]
     Active Substance: PENTOBARBITAL
     Indication: STATUS EPILEPTICUS
     Dosage: UNK
     Route: 065
  22. MIDAZOLAM HYDROCHLORIDE. [Concomitant]
     Active Substance: MIDAZOLAM HYDROCHLORIDE
     Indication: PRODUCT USED FOR UNKNOWN INDICATION
     Dosage: UNK
     Route: 065
  23. CLOBAZAM. [Suspect]
     Active Substance: CLOBAZAM
     Indication: STATUS EPILEPTICUS
     Dosage: UNK
     Route: 065
  24. ISOFLURANE USP [Suspect]
     Active Substance: ISOFLURANE
     Indication: STATUS EPILEPTICUS
     Dosage: UNK
     Route: 065
  25. KETAMINE HYDROCHLORIDE. [Concomitant]
     Active Substance: KETAMINE HYDROCHLORIDE
     Indication: PRODUCT USED FOR UNKNOWN INDICATION
     Dosage: UNK
     Route: 065
  26. PENTOBARBITAL. [Concomitant]
     Active Substance: PENTOBARBITAL
     Indication: PRODUCT USED FOR UNKNOWN INDICATION
     Dosage: UNK
     Route: 065

REACTIONS (14)
  - Gene mutation [Fatal]
  - Drug ineffective for unapproved indication [Fatal]
  - Electrocardiogram QT prolonged [Fatal]
  - Status epilepticus [Fatal]
  - Off label use [Fatal]
  - Metabolic acidosis [Fatal]
  - Blood creatine phosphokinase increased [Fatal]
  - Shock [Fatal]
  - Drug ineffective [Fatal]
  - Arrhythmia [Fatal]
  - Mitochondrial DNA mutation [Fatal]
  - Propofol infusion syndrome [Fatal]
  - Blood gases abnormal [Fatal]
  - Blood lactic acid increased [Fatal]
